FAERS Safety Report 15768428 (Version 1)
Quarter: 2018Q4

REPORT INFORMATION
  Report Type: Spontaneous
  Country: US (occurrence: US)
  Receive Date: 20181227
  Receipt Date: 20181227
  Transmission Date: 20190205
  Serious: No
  Sender: FDA-Public Use
  Company Number: US-AMGEN-USASP2018185089

PATIENT
  Sex: Male

DRUGS (4)
  1. REPATHA [Suspect]
     Active Substance: EVOLOCUMAB
     Indication: PRODUCT USED FOR UNKNOWN INDICATION
     Dosage: UNK
     Route: 065
  2. PRALUENT [Concomitant]
     Active Substance: ALIROCUMAB
     Dosage: UNK
     Dates: start: 2018
  3. PRALUENT [Concomitant]
     Active Substance: ALIROCUMAB
     Dosage: 150 MG, Q2WK
  4. PRALUENT [Concomitant]
     Active Substance: ALIROCUMAB
     Dosage: 75 MG, UNK
     Dates: start: 2016

REACTIONS (1)
  - Drug ineffective [Unknown]
